FAERS Safety Report 4904888-7 (Version None)
Quarter: 2006Q1

REPORT INFORMATION
  Report Type: 
  Country: None (occurrence: None)
  Receive Date: 20060208
  Receipt Date: 20051019
  Transmission Date: 20060701
  Serious: No
  Sender: FDA-Public Use
  Company Number: US-GLAXOSMITHKLINE-A0578739A

PATIENT
  Sex: Female

DRUGS (1)
  1. PAXIL [Suspect]
     Indication: TENSION
     Dosage: 12.5MG UNKNOWN
     Route: 048
     Dates: start: 20050801

REACTIONS (1)
  - DRUG INEFFECTIVE [None]
